FAERS Safety Report 15127416 (Version 1)
Quarter: 2018Q3

REPORT INFORMATION
  Report Type: Spontaneous
  Country: US (occurrence: US)
  Receive Date: 20180710
  Receipt Date: 20180710
  Transmission Date: 20181010
  Serious: Yes (Hospitalization, Other)
  Sender: FDA-Public Use
  Company Number: US-ELI_LILLY_AND_COMPANY-US201807000512

PATIENT
  Sex: Male

DRUGS (3)
  1. HUMALOG [Suspect]
     Active Substance: INSULIN LISPRO
     Indication: DIABETES MELLITUS
     Dosage: 18 U, PRN
     Route: 065
  2. LANTUS [Concomitant]
     Active Substance: INSULIN GLARGINE
     Indication: DIABETES MELLITUS
  3. HUMALOG [Suspect]
     Active Substance: INSULIN LISPRO
     Dosage: 18 U, PRN
     Route: 065

REACTIONS (8)
  - Eye disorder [Unknown]
  - Foot fracture [Unknown]
  - Neuropathy peripheral [Unknown]
  - Tendon rupture [Unknown]
  - Limb injury [Unknown]
  - Myocardial infarction [Unknown]
  - Musculoskeletal disorder [Unknown]
  - Retinal disorder [Unknown]

NARRATIVE: CASE EVENT DATE: 2017
